FAERS Safety Report 7345519-9 (Version None)
Quarter: 2011Q1

REPORT INFORMATION
  Report Type: 
  Country: None (occurrence: None)
  Receive Date: 20110310
  Receipt Date: 20110301
  Transmission Date: 20110831
  Serious: Yes (Other)
  Sender: FDA-Public Use
  Company Number: US-ASTRAZENECA-2011SE11389

PATIENT
  Age: 57 Year
  Sex: Female

DRUGS (1)
  1. NEXIUM [Suspect]
     Route: 048

REACTIONS (7)
  - LUNG NEOPLASM [None]
  - GASTROOESOPHAGEAL REFLUX DISEASE [None]
  - LIMB PROSTHESIS USER [None]
  - DRUG INEFFECTIVE [None]
  - OSTEOPOROSIS [None]
  - OSTEOARTHRITIS [None]
  - WEIGHT INCREASED [None]
